FAERS Safety Report 21895257 (Version 1)
Quarter: 2023Q1

REPORT INFORMATION
  Report Type: Spontaneous
  Country: CZ (occurrence: CZ)
  Receive Date: 20230123
  Receipt Date: 20230123
  Transmission Date: 20230418
  Serious: Yes (Other)
  Sender: FDA-Public Use
  Company Number: CZ-MICRO LABS LIMITED-ML2023-00322

PATIENT
  Age: 21 Year
  Sex: Male

DRUGS (1)
  1. DORZOLAMIDE [Suspect]
     Active Substance: DORZOLAMIDE
     Indication: Retinoschisis congenital
     Dosage: DORZOLAMIDE, 2% DROPS THREE TIMES A DAY

REACTIONS (1)
  - Retinoschisis congenital [Not Recovered/Not Resolved]
